FAERS Safety Report 18305743 (Version 1)
Quarter: 2020Q3

REPORT INFORMATION
  Report Type: Spontaneous
  Country: US (occurrence: US)
  Receive Date: 20200923
  Receipt Date: 20200923
  Transmission Date: 20201103
  Serious: Yes (Hospitalization)
  Sender: FDA-Public Use
  Company Number: None

PATIENT
  Age: 50 Year
  Sex: Female

DRUGS (9)
  1. VITAMIN D [Concomitant]
     Active Substance: VITAMIN D NOS
  2. NOVOFINE [Concomitant]
     Active Substance: INSULIN NOS
  3. ONDANSETRON [Concomitant]
     Active Substance: ONDANSETRON
  4. GABAPENTIN. [Concomitant]
     Active Substance: GABAPENTIN
  5. TERCONAZOLE. [Concomitant]
     Active Substance: TERCONAZOLE
  6. CEPHALEXIN. [Concomitant]
     Active Substance: CEPHALEXIN
  7. FOLIC ACID. [Concomitant]
     Active Substance: FOLIC ACID
  8. ENBREL [Suspect]
     Active Substance: ETANERCEPT
     Indication: RHEUMATOID ARTHRITIS
     Dosage: ?          OTHER FREQUENCY:WEEKLY;?
     Route: 058
  9. SAXENDA [Concomitant]
     Active Substance: LIRAGLUTIDE

REACTIONS (2)
  - Therapy interrupted [None]
  - Nephrectomy [None]

NARRATIVE: CASE EVENT DATE: 20200923
